FAERS Safety Report 6664299-3 (Version None)
Quarter: 2010Q2

REPORT INFORMATION
  Report Type: 
  Country: None (occurrence: None)
  Receive Date: 20100401
  Receipt Date: 20100323
  Transmission Date: 20101027
  Serious: Yes (Hospitalization, Other)
  Sender: FDA-Public Use
  Company Number: PHHY2010FR18869

PATIENT
  Age: 35 Year
  Sex: Male

DRUGS (3)
  1. TEGRETOL [Suspect]
     Dosage: 500MG, BID
     Route: 048
     Dates: start: 19990101
  2. TEGRETOL [Suspect]
     Dosage: 200 MG, BID
  3. AUGMENTIN '125' [Suspect]
     Indication: PYELONEPHRITIS
     Dosage: 1 G, TID
     Route: 048
     Dates: start: 20090912, end: 20090912

REACTIONS (8)
  - CLONUS [None]
  - ESCHERICHIA INFECTION [None]
  - GRAND MAL CONVULSION [None]
  - HYPOAESTHESIA [None]
  - INFLAMMATION [None]
  - PARTIAL SEIZURES [None]
  - PYELONEPHRITIS [None]
  - URINARY TRACT INFECTION [None]
